FAERS Safety Report 5710227-4 (Version None)
Quarter: 2008Q2

REPORT INFORMATION
  Report Type: 
  Country: None (occurrence: None)
  Receive Date: 20080418
  Receipt Date: 20080408
  Transmission Date: 20081010
  Serious: Yes (Other)
  Sender: FDA-Public Use
  Company Number: US-PFIZER INC-2008017813

PATIENT
  Sex: Female
  Weight: 52.2 kg

DRUGS (11)
  1. CHANTIX [Suspect]
     Indication: SMOKING CESSATION THERAPY
     Route: 048
     Dates: start: 20080101, end: 20080101
  2. PROZAC [Concomitant]
  3. XANAX [Concomitant]
  4. BUSPAR [Concomitant]
  5. PROVIGIL [Concomitant]
  6. METFORMIN HCL [Concomitant]
  7. AMERGE [Concomitant]
  8. HYDROCODONE BITARTRATE [Concomitant]
  9. TRAMADOL HCL [Concomitant]
  10. AEROBID [Concomitant]
  11. VENTOLIN [Concomitant]

REACTIONS (5)
  - AGGRESSION [None]
  - ANGER [None]
  - FEAR [None]
  - STRESS [None]
  - SUICIDAL IDEATION [None]
